FAERS Safety Report 6667935-0 (Version None)
Quarter: 2010Q2

REPORT INFORMATION
  Report Type: 
  Country: None (occurrence: None)
  Receive Date: 20100405
  Receipt Date: 20100326
  Transmission Date: 20101027
  Serious: Yes (Death)
  Sender: FDA-Public Use
  Company Number: JP-ABBOTT-10P-087-0632677-00

PATIENT
  Age: 84 Year
  Sex: Male
  Weight: 72 kg

DRUGS (8)
  1. LEUPROLIDE ACETATE [Suspect]
     Indication: PROSTATE CANCER STAGE II
     Dates: start: 20060710, end: 20070718
  2. CANDESARTAN CILEXETIL [Concomitant]
     Indication: HYPERTENSION
     Route: 048
     Dates: end: 20070518
  3. HARNAL [Concomitant]
     Indication: BENIGN PROSTATIC HYPERPLASIA
     Route: 048
  4. EUGLUCON [Concomitant]
     Indication: DIABETES MELLITUS
     Route: 048
     Dates: end: 20070505
  5. DOXAZOSIN MESYLATE [Concomitant]
     Indication: HYPERTENSION
     Route: 048
     Dates: end: 20070518
  6. ADALAT [Concomitant]
     Indication: HYPERTENSION
     Route: 048
     Dates: end: 20070518
  7. ACECOL [Concomitant]
     Indication: HYPERTENSION
     Route: 048
     Dates: end: 20070518
  8. EVIPROSTAT [Concomitant]
     Indication: BENIGN PROSTATIC HYPERPLASIA
     Route: 048
     Dates: start: 20061222

REACTIONS (2)
  - PNEUMONIA [None]
  - POLLAKIURIA [None]
